FAERS Safety Report 5333618-2 (Version None)
Quarter: 2007Q1

REPORT INFORMATION
  Report Type: 
  Country: None (occurrence: None)
  Receive Date: 20070306
  Receipt Date: 20060220
  Transmission Date: 20070707
  Serious: Yes (Other)
  Sender: FDA-Public Use
  Company Number: A03200600969

PATIENT
  Age: 58 Year
  Sex: Female

DRUGS (2)
  1. PLAVIX [Suspect]
     Indication: CEREBROVASCULAR ACCIDENT
     Dosage: 75 MG QD - ORAL
     Route: 048
     Dates: start: 20041001
  2. ACETYLSALICYLIC ACID SRT [Concomitant]

REACTIONS (2)
  - METRORRHAGIA [None]
  - TRANSIENT ISCHAEMIC ATTACK [None]
